FAERS Safety Report 12135777 (Version 9)
Quarter: 2017Q1

REPORT INFORMATION
  Report Type: Spontaneous
  Country: ES (occurrence: ES)
  Receive Date: 20160302
  Receipt Date: 20170223
  Transmission Date: 20170428
  Serious: Yes (Hospitalization, Other)
  Sender: FDA-Public Use
  Company Number: ES-AMGEN-ESPSP2016024693

PATIENT
  Age: 49 Year
  Sex: Male

DRUGS (10)
  1. OMEPRAZOLE. [Concomitant]
     Active Substance: OMEPRAZOLE
     Dosage: UNK
  2. SENSEDOL [Concomitant]
     Indication: ARTHRALGIA
     Dosage: UNK, 1X/DAY ONE APPLICATION
  3. INACID [Concomitant]
     Active Substance: INDOMETHACIN
     Indication: ANKYLOSING SPONDYLITIS
     Dosage: 1 DF, 3X/DAY (EVERY 8 HOURS)
  4. DILIBAN [Concomitant]
     Active Substance: ACETAMINOPHEN\TRAMADOL HYDROCHLORIDE
     Indication: PAIN
  5. ENBREL [Suspect]
     Active Substance: ETANERCEPT
     Dosage: 50 MG, WEEKLY
     Route: 058
  6. SENSEDOL [Concomitant]
     Indication: ARTHRALGIA
  7. ENBREL [Suspect]
     Active Substance: ETANERCEPT
     Indication: ANKYLOSING SPONDYLITIS
     Dosage: 50 MG, ONCE WEEKLY (ON FRIDAYS)
     Route: 058
     Dates: start: 20160122
  8. NAPROXEN. [Concomitant]
     Active Substance: NAPROXEN
     Indication: ANKYLOSING SPONDYLITIS
     Dosage: 1 DF, 3X/DAY
  9. ENBREL [Suspect]
     Active Substance: ETANERCEPT
     Dosage: 50 MG, WEEKLY (ON SUNDAYS)
     Route: 058
  10. DILIBAN [Concomitant]
     Active Substance: ACETAMINOPHEN\TRAMADOL HYDROCHLORIDE
     Indication: ANALGESIC THERAPY
     Dosage: 75 MG, 3X/DAY (EVERY 8 HOURS)

REACTIONS (11)
  - Abdominal discomfort [Recovered/Resolved]
  - Pain [Recovering/Resolving]
  - Fatigue [Recovered/Resolved]
  - Nausea [Recovering/Resolving]
  - Sensitivity to weather change [Recovering/Resolving]
  - Drug ineffective [Not Recovered/Not Resolved]
  - Discomfort [Recovering/Resolving]
  - Injection site pain [Recovering/Resolving]
  - Ankylosing spondylitis [Unknown]
  - Joint stiffness [Not Recovered/Not Resolved]
  - Injection site swelling [Recovered/Resolved]

NARRATIVE: CASE EVENT DATE: 2016
